FAERS Safety Report 9974200 (Version 4)
Quarter: 2014Q2

REPORT INFORMATION
  Report Type: Report from Study
  Country: IE (occurrence: IE)
  Receive Date: 20140306
  Receipt Date: 20140501
  Transmission Date: 20141212
  Serious: Yes (Hospitalization)
  Sender: FDA-Public Use
  Company Number: IE-GLAXOSMITHKLINE-B0974471A

PATIENT
  Age: 73 Year
  Sex: Male

DRUGS (7)
  1. VOTRIENT [Suspect]
     Indication: THYROID CANCER METASTATIC
     Dosage: 800MG PER DAY
     Dates: start: 201310
  2. ELTROXIN [Concomitant]
     Dosage: 200MCG PER DAY
     Route: 048
  3. CO-DIOVAN [Concomitant]
     Dosage: 80MG PER DAY
     Route: 048
  4. ZIMOVANE [Concomitant]
     Dosage: 7.5MG PER DAY
     Route: 048
  5. LUSTRAL [Concomitant]
     Dosage: 50MG PER DAY
     Route: 048
  6. LOSEC [Concomitant]
     Dosage: 20MG PER DAY
     Route: 048
  7. NUSEALS ASPIRIN [Concomitant]
     Dosage: 75MG PER DAY
     Route: 048

REACTIONS (6)
  - Lower respiratory tract infection [Recovered/Resolved]
  - Nasopharyngitis [Unknown]
  - Haemoptysis [Unknown]
  - Cough [Unknown]
  - Nausea [Unknown]
  - Chills [Unknown]
